FAERS Safety Report 25927944 (Version 1)
Quarter: 2025Q4

REPORT INFORMATION
  Report Type: Spontaneous
  Country: US (occurrence: US)
  Receive Date: 20251016
  Receipt Date: 20251016
  Transmission Date: 20260118
  Serious: No
  Sender: SANOFI AVENTIS
  Company Number: US-SA-2025SA306604

PATIENT
  Age: 73 Year
  Sex: Female

DRUGS (2)
  1. PLAVIX [Suspect]
     Active Substance: CLOPIDOGREL BISULFATE
     Dosage: UNK
  2. VOQUEZNA [Suspect]
     Active Substance: VONOPRAZAN FUMARATE
     Dosage: 10 MG, QD
     Route: 048
     Dates: start: 20250620, end: 20250911

REACTIONS (2)
  - Drug interaction [Unknown]
  - Unevaluable event [Unknown]

NARRATIVE: CASE EVENT DATE: 20250101
